FAERS Safety Report 9706677 (Version 2)
Quarter: 2014Q4

REPORT INFORMATION
  Report Type: Other
  Country: GB (occurrence: GB)
  Receive Date: 20131125
  Receipt Date: 20141107
  Transmission Date: 20150529
  Serious: Yes (Life-Threatening, Hospitalization, Disabling, Other)
  Sender: FDA-Public Use
  Company Number: GB-MYLANLABS-2013S1025393

PATIENT

DRUGS (6)
  1. HALCION [Suspect]
     Active Substance: TRIAZOLAM
     Indication: ROAD TRAFFIC ACCIDENT
     Dosage: UNK
     Route: 048
  2. LIBRIUM [Suspect]
     Active Substance: CHLORDIAZEPOXIDE HYDROCHLORIDE
     Indication: ROAD TRAFFIC ACCIDENT
  3. DIAZEPAM. [Suspect]
     Active Substance: DIAZEPAM
     Indication: ROAD TRAFFIC ACCIDENT
     Dosage: UNK
     Route: 048
  4. ATIVAN [Suspect]
     Active Substance: LORAZEPAM
     Indication: ROAD TRAFFIC ACCIDENT
     Dosage: HIGH DOSES UNDER DOCTORS APPROVAL
     Route: 048
  5. TRANXENE T-TAB [Suspect]
     Active Substance: CLORAZEPATE DIPOTASSIUM
     Indication: ROAD TRAFFIC ACCIDENT
     Dosage: UNK
     Route: 048
  6. VALIUM [Suspect]
     Active Substance: DIAZEPAM
     Indication: ROAD TRAFFIC ACCIDENT

REACTIONS (15)
  - Vomiting [Not Recovered/Not Resolved]
  - Panic disorder [Not Recovered/Not Resolved]
  - Asthenia [Unknown]
  - Drug interaction [Unknown]
  - Medication error [Unknown]
  - Migraine [Not Recovered/Not Resolved]
  - Post-traumatic stress disorder [Not Recovered/Not Resolved]
  - Lethargy [Unknown]
  - Pain [Not Recovered/Not Resolved]
  - Depressed mood [Unknown]
  - Bladder disorder [Not Recovered/Not Resolved]
  - Agoraphobia [Not Recovered/Not Resolved]
  - Poisoning [Unknown]
  - Functional gastrointestinal disorder [Not Recovered/Not Resolved]
  - Suicidal ideation [Unknown]

NARRATIVE: CASE EVENT DATE: 19980705
